FAERS Safety Report 20136482 (Version 3)
Quarter: 2022Q3

REPORT INFORMATION
  Report Type: Report from Study
  Country: ES (occurrence: ES)
  Receive Date: 20211201
  Receipt Date: 20220830
  Transmission Date: 20221027
  Serious: Yes (Hospitalization, Other)
  Sender: FDA-Public Use
  Company Number: ES-TAKEDA-2021TUS073968

PATIENT
  Age: 2 Year
  Sex: Male

DRUGS (16)
  1. TEDUGLUTIDE [Suspect]
     Active Substance: TEDUGLUTIDE
     Indication: Short-bowel syndrome
     Dosage: 0.4 MILLIGRAM, QD
     Route: 042
     Dates: start: 20201106, end: 20210405
  2. TEDUGLUTIDE [Suspect]
     Active Substance: TEDUGLUTIDE
     Indication: Short-bowel syndrome
     Dosage: 0.4 MILLIGRAM, QD
     Route: 042
     Dates: start: 20201106, end: 20210405
  3. TEDUGLUTIDE [Suspect]
     Active Substance: TEDUGLUTIDE
     Indication: Short-bowel syndrome
     Dosage: 0.4 MILLIGRAM, QD
     Route: 042
     Dates: start: 20201106, end: 20210405
  4. TEDUGLUTIDE [Suspect]
     Active Substance: TEDUGLUTIDE
     Indication: Short-bowel syndrome
     Dosage: 0.4 MILLIGRAM, QD
     Route: 042
     Dates: start: 20201106, end: 20210405
  5. TEDUGLUTIDE [Suspect]
     Active Substance: TEDUGLUTIDE
     Dosage: 0.4 MILLIGRAM, QD
     Route: 042
     Dates: start: 20210405, end: 20210515
  6. TEDUGLUTIDE [Suspect]
     Active Substance: TEDUGLUTIDE
     Dosage: 0.4 MILLIGRAM, QD
     Route: 042
     Dates: start: 20210405, end: 20210515
  7. TEDUGLUTIDE [Suspect]
     Active Substance: TEDUGLUTIDE
     Dosage: 0.4 MILLIGRAM, QD
     Route: 042
     Dates: start: 20210405, end: 20210515
  8. TEDUGLUTIDE [Suspect]
     Active Substance: TEDUGLUTIDE
     Dosage: 0.4 MILLIGRAM, QD
     Route: 042
     Dates: start: 20210405, end: 20210515
  9. SULFAMETHOXAZOLE\TRIMETHOPRIM [Concomitant]
     Active Substance: SULFAMETHOXAZOLE\TRIMETHOPRIM
     Indication: Post procedural discomfort
     Dosage: 3 MILLILITER, BID
     Route: 048
     Dates: start: 20210702
  10. SULFAMETHOXAZOLE\TRIMETHOPRIM [Concomitant]
     Active Substance: SULFAMETHOXAZOLE\TRIMETHOPRIM
     Dosage: 4 MILLILITER, TID
     Route: 048
     Dates: start: 20220304
  11. BEMIPARIN SODIUM [Concomitant]
     Active Substance: BEMIPARIN SODIUM
     Dosage: 850 INTERNATIONAL UNIT, QD
     Route: 058
     Dates: start: 20210702
  12. PREDNISOLONE STEAGLATE [Concomitant]
     Active Substance: PREDNISOLONE STEAGLATE
     Indication: Multivisceral transplantation
     Dosage: 0.70 MILLILITER, QD
     Route: 048
     Dates: start: 20210715
  13. PREDNISOLONE STEAGLATE [Concomitant]
     Active Substance: PREDNISOLONE STEAGLATE
     Dosage: 1.5 MILLILITER, QD
     Route: 048
     Dates: start: 20210702, end: 20210715
  14. ARGENPAL [Concomitant]
     Indication: Stoma site haemorrhage
     Dosage: UNK
     Route: 061
     Dates: start: 20210830, end: 202109
  15. TACROLIMUS [Concomitant]
     Active Substance: TACROLIMUS
     Indication: Post procedural discomfort
     Dosage: 4.4 MILLIGRAM, BID
     Route: 048
     Dates: start: 20220420
  16. VITAMIN D3 [Concomitant]
     Active Substance: CHOLECALCIFEROL
     Indication: Vitamin D deficiency
     Dosage: 6 GTT DROPS, QD
     Route: 048
     Dates: start: 20220420

REACTIONS (3)
  - Intestinal obstruction [Recovered/Resolved]
  - Multivisceral transplantation [Recovered/Resolved]
  - Wound evisceration [Recovered/Resolved]

NARRATIVE: CASE EVENT DATE: 20210514
